FAERS Safety Report 21345600 (Version 15)
Quarter: 2023Q2

REPORT INFORMATION
  Report Type: Report from Study
  Country: US (occurrence: US)
  Receive Date: 20220916
  Receipt Date: 20230623
  Transmission Date: 20230721
  Serious: Yes (Other)
  Sender: FDA-Public Use
  Company Number: US-TAKEDA-US202016184

PATIENT
  Age: 47 Year
  Sex: Female

DRUGS (27)
  1. LANADELUMAB [Suspect]
     Active Substance: LANADELUMAB
     Indication: Immune system disorder
     Dosage: 300 MILLIGRAM
     Route: 058
     Dates: start: 20120312
  2. LANADELUMAB [Suspect]
     Active Substance: LANADELUMAB
     Indication: Menstrual disorder
     Dosage: 300 MILLIGRAM
     Route: 058
     Dates: start: 201701
  3. LANADELUMAB [Suspect]
     Active Substance: LANADELUMAB
     Indication: Anaemia
     Dosage: 2 MILLILITER
     Route: 058
     Dates: start: 201811
  4. LANADELUMAB [Suspect]
     Active Substance: LANADELUMAB
     Indication: Female reproductive tract disorder
     Dosage: 300 MILLIGRAM, Q2WEEKS
     Route: 058
     Dates: start: 20181116
  5. LANADELUMAB [Suspect]
     Active Substance: LANADELUMAB
     Indication: Hereditary angioedema
     Dosage: 300 MILLIGRAM, Q2WEEKS
     Route: 058
     Dates: start: 20181117
  6. LANADELUMAB [Suspect]
     Active Substance: LANADELUMAB
     Dosage: 300 MILLIGRAM
     Route: 058
     Dates: start: 20181126
  7. LANADELUMAB [Suspect]
     Active Substance: LANADELUMAB
     Dosage: 300 MILLIGRAM, Q2WEEKS
     Route: 058
     Dates: start: 201811
  8. LANADELUMAB [Suspect]
     Active Substance: LANADELUMAB
     Dosage: 300 MILLIGRAM
     Route: 058
     Dates: start: 201901
  9. LANADELUMAB [Suspect]
     Active Substance: LANADELUMAB
     Dosage: 300 MILLIGRAM, Q2WEEKS
     Route: 058
     Dates: start: 201909
  10. LANADELUMAB [Suspect]
     Active Substance: LANADELUMAB
     Dosage: 300 MILLIGRAM, Q2WEEKS
     Route: 058
     Dates: start: 20191016
  11. LANADELUMAB [Suspect]
     Active Substance: LANADELUMAB
     Dosage: 300 MILLIGRAM, Q2WEEKS
     Route: 058
     Dates: start: 20200206
  12. LANADELUMAB [Suspect]
     Active Substance: LANADELUMAB
     Dosage: 2 MILLILITER, Q2WEEKS
     Route: 058
     Dates: start: 20200207
  13. LANADELUMAB [Suspect]
     Active Substance: LANADELUMAB
     Dosage: 300 MILLIGRAM
     Route: 058
     Dates: start: 20200627
  14. LANADELUMAB [Suspect]
     Active Substance: LANADELUMAB
     Dosage: 300 MILLIGRAM
     Route: 058
     Dates: start: 202006
  15. LANADELUMAB [Suspect]
     Active Substance: LANADELUMAB
     Dosage: 300 MILLIGRAM, Q2WEEKS
     Route: 058
     Dates: start: 202006
  16. LANADELUMAB [Suspect]
     Active Substance: LANADELUMAB
     Dosage: 2 MILLILITER
     Route: 058
     Dates: start: 20200701
  17. LANADELUMAB [Suspect]
     Active Substance: LANADELUMAB
     Dosage: 300 MILLIGRAM, Q2WEEKS
     Route: 058
     Dates: start: 20210908
  18. LANADELUMAB [Suspect]
     Active Substance: LANADELUMAB
     Dosage: 2 MILLILITER
     Route: 058
     Dates: start: 202110
  19. LANADELUMAB [Suspect]
     Active Substance: LANADELUMAB
     Dosage: 300 MILLIGRAM, Q2WEEKS
     Route: 058
     Dates: start: 202110
  20. LANADELUMAB [Suspect]
     Active Substance: LANADELUMAB
     Dosage: 300 MILLIGRAM, Q2WEEKS
     Route: 058
     Dates: start: 20220915
  21. LANADELUMAB [Suspect]
     Active Substance: LANADELUMAB
     Dosage: 300 MILLIGRAM, Q2WEEKS
     Route: 058
     Dates: start: 202209
  22. KALBITOR [Suspect]
     Active Substance: ECALLANTIDE
     Indication: Hereditary angioedema
     Dosage: 30 MILLIGRAM
     Route: 058
     Dates: start: 201701
  23. KALBITOR [Suspect]
     Active Substance: ECALLANTIDE
     Indication: Immune system disorder
     Dosage: 30 MILLIGRAM
     Route: 058
     Dates: start: 201702
  24. KALBITOR [Suspect]
     Active Substance: ECALLANTIDE
     Indication: Menstrual disorder
     Dosage: 30 MILLIGRAM
     Route: 058
     Dates: start: 201811
  25. KALBITOR [Suspect]
     Active Substance: ECALLANTIDE
     Indication: Female reproductive tract disorder
     Dosage: 30 MILLIGRAM
     Route: 058
     Dates: start: 201907
  26. KALBITOR [Suspect]
     Active Substance: ECALLANTIDE
     Indication: Anaemia
     Dosage: 30 MILLIGRAM
     Route: 058
     Dates: start: 20200225
  27. KALBITOR [Suspect]
     Active Substance: ECALLANTIDE
     Dosage: 30 MILLIGRAM
     Route: 058
     Dates: start: 202110

REACTIONS (3)
  - Nephrolithiasis [Unknown]
  - Hereditary angioedema [Recovered/Resolved]
  - Off label use [Unknown]

NARRATIVE: CASE EVENT DATE: 20220421
